FAERS Safety Report 8497284 (Version 3)
Quarter: 2015Q4

REPORT INFORMATION
  Report Type: Report from Study
  Country: CA (occurrence: CA)
  Receive Date: 20120406
  Receipt Date: 20151214
  Transmission Date: 20160305
  Serious: Yes (Hospitalization)
  Sender: FDA-Public Use
  Company Number: CA-UCBSA-052178

PATIENT
  Age: 60 Year
  Sex: Female
  Weight: 77 kg

DRUGS (16)
  1. CERTOLIZUMAB PEGOL RA [Suspect]
     Active Substance: CERTOLIZUMAB PEGOL
     Indication: RHEUMATOID ARTHRITIS
     Dosage: 400 MG, EV 2 WEEKS(QOW)
     Route: 058
     Dates: start: 20120210, end: 2012
  2. PREDNISONE. [Suspect]
     Active Substance: PREDNISONE
     Indication: RHEUMATOID ARTHRITIS
     Dosage: DAILY DOSE : 50 MG
     Dates: start: 20120320, end: 2012
  3. CLARITIN [Concomitant]
     Active Substance: LORATADINE
     Indication: INJECTION SITE REACTION
     Route: 048
     Dates: start: 20120305
  4. HUMIRA [Concomitant]
     Active Substance: ADALIMUMAB
     Dates: start: 2004, end: 201109
  5. LASIX [Concomitant]
     Active Substance: FUROSEMIDE
     Indication: PRODUCT USED FOR UNKNOWN INDICATION
     Dosage: UNK
  6. CERTOLIZUMAB PEGOL RA [Suspect]
     Active Substance: CERTOLIZUMAB PEGOL
     Dosage: UNK
     Dates: start: 20120501, end: 201206
  7. SYNTHROID [Concomitant]
     Active Substance: LEVOTHYROXINE SODIUM
     Indication: HYPOTHYROIDISM
     Dosage: DOSE PER INTAKE: 0.075 MG
     Route: 048
  8. ALEVA [Concomitant]
     Indication: RHEUMATOID ARTHRITIS
     Dosage: UNK UNK, 2X/DAY (BID)
     Route: 048
     Dates: start: 201201, end: 20120320
  9. MTX [Concomitant]
     Active Substance: METHOTREXATE SODIUM
     Dates: start: 2011, end: 201201
  10. AERIUS [Concomitant]
     Active Substance: DESLORATADINE
     Indication: PRODUCT USED FOR UNKNOWN INDICATION
  11. LOSEC [Concomitant]
     Active Substance: OMEPRAZOLE
     Indication: GASTROOESOPHAGEAL REFLUX DISEASE
     Dosage: DAILY
     Route: 048
  12. PREDNISONE. [Suspect]
     Active Substance: PREDNISONE
     Dosage: 25 MG (10 TABS OF 2.5MG)
     Dates: start: 2012, end: 2012
  13. PREDNISONE. [Suspect]
     Active Substance: PREDNISONE
     Dosage: 12.5 MG (5 TABLETS OF 2.5 MG)
     Dates: start: 2012, end: 2012
  14. HUMIRA [Concomitant]
     Active Substance: ADALIMUMAB
     Dates: start: 201110
  15. FUROSEMIDE. [Concomitant]
     Active Substance: FUROSEMIDE
     Dosage: 20 MG, ONCE DAILY (QD)
  16. MTX [Concomitant]
     Active Substance: METHOTREXATE SODIUM
     Dates: start: 2004

REACTIONS (17)
  - Fatigue [Recovering/Resolving]
  - Dizziness [Recovering/Resolving]
  - Blood pressure increased [Recovered/Resolved]
  - Liver function test abnormal [Recovered/Resolved]
  - Peripheral swelling [Unknown]
  - Arthralgia [Recovered/Resolved]
  - Malaise [Unknown]
  - Injection site reaction [Recovered/Resolved]
  - Injection site discolouration [Recovered/Resolved]
  - Pain in extremity [Recovering/Resolving]
  - Injection site pruritus [Not Recovered/Not Resolved]
  - Nausea [Recovering/Resolving]
  - Hyperhidrosis [Unknown]
  - Vomiting [Recovered/Resolved]
  - Arthritis [Unknown]
  - Joint swelling [Recovering/Resolving]
  - Musculoskeletal pain [Unknown]

NARRATIVE: CASE EVENT DATE: 2012
